FAERS Safety Report 5388693-6 (Version None)
Quarter: 2007Q3

REPORT INFORMATION
  Report Type: 
  Country: None (occurrence: None)
  Receive Date: 20070716
  Receipt Date: 20070706
  Transmission Date: 20080115
  Serious: Yes (Hospitalization)
  Sender: FDA-Public Use
  Company Number: US-ABBOTT-06P-163-0345134-00

PATIENT
  Sex: Male
  Weight: 81.72 kg

DRUGS (4)
  1. SYNTHROID [Suspect]
     Indication: THYROIDECTOMY
     Route: 048
     Dates: start: 19750101
  2. OMEPRAZOLE [Concomitant]
     Indication: OESOPHAGEAL DISORDER
     Route: 048
  3. HEART MEDICATION [Concomitant]
     Indication: CARDIAC DISORDER
     Dates: end: 20060101
  4. TOPROL-XL [Concomitant]
     Indication: CARDIAC DISORDER
     Route: 048

REACTIONS (6)
  - ARRHYTHMIA [None]
  - DYSPEPSIA [None]
  - FAECES DISCOLOURED [None]
  - HEART RATE INCREASED [None]
  - LETHARGY [None]
  - PSYCHOMOTOR HYPERACTIVITY [None]
